FAERS Safety Report 25625812 (Version 1)
Quarter: 2025Q3

REPORT INFORMATION
  Report Type: Spontaneous
  Country: GB (occurrence: GB)
  Receive Date: 20250731
  Receipt Date: 20250731
  Transmission Date: 20251021
  Serious: Yes (Other)
  Sender: HETERO
  Company Number: None

PATIENT
  Age: 41 Year
  Sex: Female
  Weight: 80 kg

DRUGS (2)
  1. FEXOFENADINE [Suspect]
     Active Substance: FEXOFENADINE HYDROCHLORIDE
     Indication: Urticaria
     Route: 065
     Dates: start: 20250711, end: 20250716
  2. FLUCLOXACILLIN [Concomitant]
     Active Substance: FLUCLOXACILLIN
     Indication: Infection
     Route: 065
     Dates: start: 20250711, end: 20250718

REACTIONS (3)
  - Hypertension [Recovered/Resolved]
  - Tachycardia [Recovered/Resolved]
  - Pruritus [Recovering/Resolving]

NARRATIVE: CASE EVENT DATE: 20250712
